FAERS Safety Report 5811058-7 (Version None)
Quarter: 2008Q3

REPORT INFORMATION
  Report Type: 
  Country: None (occurrence: None)
  Receive Date: 20080710
  Receipt Date: 20080623
  Transmission Date: 20090109
  Serious: Yes (Hospitalization)
  Sender: FDA-Public Use
  Company Number: A-CH2008-20565

PATIENT
  Age: 71 Year
  Sex: Male

DRUGS (10)
  1. TRACLEER [Suspect]
     Indication: PULMONARY HYPERTENSION
     Dosage: 125 MG, BID, ORAL
     Route: 048
  2. ALLOPURINOL [Concomitant]
  3. ARIPIPRAZOLE [Concomitant]
  4. BUMETANIDE [Concomitant]
  5. DEPAKOTE [Concomitant]
  6. SILDENAFIL TABLET [Concomitant]
  7. ZOPICALM (ZOPICLONE) [Concomitant]
  8. MEBEVERINE (MEBEVERINE) [Concomitant]
  9. PIPERACILLIN SODIUM AND TAZOBACTAM SODIUM [Concomitant]
  10. CLARITHROMYCIN [Concomitant]

REACTIONS (6)
  - BLOOD CREATININE INCREASED [None]
  - CONDITION AGGRAVATED [None]
  - DYSPHAGIA [None]
  - MALAISE [None]
  - PNEUMONIA [None]
  - RENAL FAILURE ACUTE [None]
